FAERS Safety Report 10430471 (Version 1)
Quarter: 2014Q3

REPORT INFORMATION
  Report Type: Spontaneous
  Country: CH (occurrence: None)
  Receive Date: 20140902
  Receipt Date: 20140902
  Transmission Date: 20150326
  Serious: Yes (Hospitalization)
  Sender: FDA-Public Use
  Company Number: 20140564

PATIENT
  Age: 35 Year
  Sex: Female

DRUGS (2)
  1. FERINJECT [Suspect]
     Active Substance: FERRIC CARBOXYMALTOSE
     Indication: SERUM FERRITIN DECREASED
     Route: 042
     Dates: start: 20131001
  2. FERINJECT [Suspect]
     Active Substance: FERRIC CARBOXYMALTOSE
     Indication: FATIGUE
     Route: 042
     Dates: start: 20131001

REACTIONS (4)
  - Vanishing twin syndrome [None]
  - Maternal exposure during pregnancy [None]
  - Off label use [None]
  - Caesarean section [None]

NARRATIVE: CASE EVENT DATE: 201310
